FAERS Safety Report 9445455 (Version 2)
Quarter: 2013Q4

REPORT INFORMATION
  Report Type: Spontaneous
  Country: GB (occurrence: GB)
  Receive Date: 20130807
  Receipt Date: 20131118
  Transmission Date: 20140711
  Serious: Yes (Congenital Anomaly)
  Sender: FDA-Public Use
  Company Number: GB-WATSON-2013-13877

PATIENT
  Sex: 0

DRUGS (6)
  1. PREGABALIN (UNKNOWN) [Suspect]
     Indication: PAIN IN EXTREMITY
     Dosage: 300 MG, BID
     Route: 064
  2. DIAZEPAM (UNKNOWN) [Suspect]
     Indication: PRODUCT USED FOR UNKNOWN INDICATION
     Dosage: 10 MG, TID
     Route: 064
  3. OLANZAPINE (UNKNOWN) [Suspect]
     Indication: SCHIZOPHRENIA
     Dosage: 15 MG, DAILY
     Route: 064
  4. ZOPICLONE (UNKNOWN) [Suspect]
     Indication: PRODUCT USED FOR UNKNOWN INDICATION
     Dosage: 15 MG, DAILY
     Route: 064
  5. OMEPRAZOLE (UNKNOWN) [Suspect]
     Indication: PRODUCT USED FOR UNKNOWN INDICATION
     Dosage: 30 MG, UNKNOWN
     Route: 064
  6. SUBUTEX [Suspect]
     Indication: SUBSTANCE ABUSE
     Dosage: 14 MG, DAILY
     Route: 064

REACTIONS (5)
  - Foetal malformation [Not Recovered/Not Resolved]
  - Limb reduction defect [Not Recovered/Not Resolved]
  - Congenital scoliosis [Not Recovered/Not Resolved]
  - Single functional kidney [Not Recovered/Not Resolved]
  - Foetal exposure during pregnancy [Unknown]
